FAERS Safety Report 6051310-6 (Version None)
Quarter: 2009Q1

REPORT INFORMATION
  Report Type: 
  Country: None (occurrence: None)
  Receive Date: 20090121
  Receipt Date: 20090105
  Transmission Date: 20090719
  Serious: Yes (Hospitalization)
  Sender: FDA-Public Use
  Company Number: 2009000012

PATIENT
  Age: 77 Year
  Sex: Male
  Weight: 41 kg

DRUGS (10)
  1. ERLOTINIB       (ERLOTINIB) [Suspect]
     Indication: LUNG SQUAMOUS CELL CARCINOMA STAGE UNSPECIFIED
     Dosage: (150 MG, QD), ORAL
     Route: 048
     Dates: start: 20080101, end: 20081201
  2. SUNRYTHM      (PILSICAINIDE HYDROCHLORIDE) [Concomitant]
  3. MUCOSTA       (REBAMIPIDE) [Concomitant]
  4. MUCOSOLVAN        (AMBROXOL HYDROCHLORIDE) [Concomitant]
  5. SPIRIVA [Concomitant]
  6. TIZANIDINE HCL [Concomitant]
  7. URSO 250 [Concomitant]
  8. NEO-MINOPHAGEN C (GLYCYRRHIZIC ACID, AMMONIUM SALT) [Concomitant]
  9. VERAPAMIL HYDROCHLORIDE [Concomitant]
  10. PURSENNID (SENNA LEAF) [Concomitant]

REACTIONS (9)
  - ANOREXIA [None]
  - CONSTIPATION [None]
  - DIARRHOEA [None]
  - DYSPNOEA [None]
  - EXFOLIATIVE RASH [None]
  - FATIGUE [None]
  - REACTION TO DRUG EXCIPIENTS [None]
  - TOOTHACHE [None]
  - VOMITING [None]
